FAERS Safety Report 8819218 (Version 2)
Quarter: 2014Q2

REPORT INFORMATION
  Report Type: Spontaneous
  Country: US (occurrence: US)
  Receive Date: 20121001
  Receipt Date: 20131024
  Transmission Date: 20141212
  Serious: No
  Sender: FDA-Public Use
  Company Number: US-PFIZER INC-2012239077

PATIENT
  Age: 69 Year
  Sex: 0

DRUGS (4)
  1. TETRACYCLINE HCL [Suspect]
     Dosage: UNK
  2. E-MYCIN [Suspect]
     Dosage: UNK
  3. KEFLEX [Suspect]
     Dosage: UNK
  4. TUSSINS [Suspect]
     Dosage: UNK

REACTIONS (1)
  - Drug hypersensitivity [Unknown]
